FAERS Safety Report 8021251-3 (Version None)
Quarter: 2012Q1

REPORT INFORMATION
  Report Type: 
  Country: None (occurrence: None)
  Receive Date: 20120104
  Receipt Date: 20111221
  Transmission Date: 20120608
  Serious: Yes (Hospitalization)
  Sender: FDA-Public Use
  Company Number: FR-UCBSA-048283

PATIENT
  Age: 82 Year
  Sex: Male

DRUGS (15)
  1. EZETIMIBE [Concomitant]
     Dosage: DAILY DOSE: 40 MG
  2. CORDARONE [Concomitant]
  3. ZOPICLONE [Concomitant]
     Dosage: ONE UNIT DAILY
  4. VITAMIN B1B6 [Concomitant]
  5. BISOPROLOL FUMARATE [Concomitant]
     Dosage: IN THE MORNING
  6. PLAVIX [Concomitant]
     Dosage: DAILY DOSE: 75 MG
  7. SPECIAFOLDINE [Concomitant]
  8. PROTENPLUS DRINK [Concomitant]
     Dosage: ONE UNIT DAILY
  9. KAYEXALATE [Concomitant]
  10. CACIT [Concomitant]
     Dosage: 2 UNITS DAILY
  11. CITALOPRAM HYDROBROMIDE [Concomitant]
     Dosage: 20 MG ;DAILY DOSE: 10 MG
  12. ACETAMINOPHEN [Concomitant]
  13. KEPPRA [Suspect]
     Indication: CONVULSION
     Dosage: DAILY DOSE: 500 MG
     Route: 048
     Dates: start: 20110515, end: 20110607
  14. OMEPRAZOLE [Concomitant]
     Dosage: DAILY DOSE: 20 MG
  15. VITAMIN B-12 [Concomitant]

REACTIONS (1)
  - SUBDURAL HAEMATOMA [None]
